FAERS Safety Report 20696540 (Version 1)
Quarter: 2022Q2

REPORT INFORMATION
  Report Type: Other
  Country: US (occurrence: US)
  Receive Date: 20220411
  Receipt Date: 20220411
  Transmission Date: 20220721
  Serious: No
  Sender: FDA-Public Use
  Company Number: US-TRAVERE-2022TVT00335

PATIENT
  Age: 1 Year
  Sex: Male

DRUGS (1)
  1. CHOLBAM [Suspect]
     Active Substance: CHOLIC ACID
     Indication: Multiple congenital abnormalities
     Route: 048
     Dates: start: 20220203

REACTIONS (3)
  - Diarrhoea [Unknown]
  - Decreased appetite [Unknown]
  - Ear infection [Unknown]

NARRATIVE: CASE EVENT DATE: 20220301
